FAERS Safety Report 7450178-0 (Version None)
Quarter: 2011Q2

REPORT INFORMATION
  Report Type: 
  Country: None (occurrence: None)
  Receive Date: 20110502
  Receipt Date: 20110426
  Transmission Date: 20111010
  Serious: No
  Sender: FDA-Public Use
  Company Number: US-PFIZER INC-2011091316

PATIENT
  Sex: Male
  Weight: 90.703 kg

DRUGS (2)
  1. GEODON [Suspect]
     Indication: SCHIZOPHRENIA
     Dosage: 80 MG, 2X/DAY
     Route: 048
     Dates: start: 20011201
  2. KLONOPIN [Concomitant]
     Indication: SLEEP DISORDER
     Dosage: 1 MG, UNK
     Route: 048

REACTIONS (2)
  - BLOOD TESTOSTERONE DECREASED [None]
  - BLOOD PROLACTIN INCREASED [None]
